FAERS Safety Report 13705641 (Version 1)
Quarter: 2017Q2

REPORT INFORMATION
  Report Type: Spontaneous
  Country: DE (occurrence: DE)
  Receive Date: 20170630
  Receipt Date: 20170630
  Transmission Date: 20170830
  Serious: Yes (Disabling, Other)
  Sender: FDA-Public Use
  Company Number: DE-ASTRAZENECA-2017SE31029

PATIENT
  Age: 784 Month
  Sex: Female
  Weight: 63 kg

DRUGS (1)
  1. TAGRISSO [Suspect]
     Active Substance: OSIMERTINIB
     Route: 048

REACTIONS (1)
  - Thrombophlebitis [Not Recovered/Not Resolved]

NARRATIVE: CASE EVENT DATE: 201703
